FAERS Safety Report 24694014 (Version 1)
Quarter: 2024Q4

REPORT INFORMATION
  Report Type: Spontaneous
  Country: US (occurrence: US)
  Receive Date: 20241204
  Receipt Date: 20241204
  Transmission Date: 20250114
  Serious: No
  Sender: DR REDDYS
  Company Number: US-DRL-USA-SPO/USA/24/0016606

PATIENT
  Sex: Male

DRUGS (2)
  1. OMEPRAZOLE [Suspect]
     Active Substance: OMEPRAZOLE
     Indication: Hyperchlorhydria
  2. ESOMEPRAZOLE MAGNESIUM [Suspect]
     Active Substance: ESOMEPRAZOLE MAGNESIUM
     Indication: Hyperchlorhydria

REACTIONS (5)
  - Abdominal discomfort [Unknown]
  - Condition aggravated [Unknown]
  - Abdominal pain upper [Unknown]
  - Product substitution issue [Unknown]
  - Suspected product contamination [Unknown]
